FAERS Safety Report 12314098 (Version 7)
Quarter: 2016Q3

REPORT INFORMATION
  Report Type: Report from Study
  Country: US (occurrence: US)
  Receive Date: 20160428
  Receipt Date: 20160706
  Transmission Date: 20161109
  Serious: Yes (Hospitalization)
  Sender: FDA-Public Use
  Company Number: US-ACTELION-A-US2016-134940

PATIENT
  Age: 79 Year
  Sex: Male

DRUGS (3)
  1. VELETRI [Suspect]
     Active Substance: EPOPROSTENOL
     Indication: PULMONARY ARTERIAL HYPERTENSION
     Dosage: 16.5 NG/KG, PER MIN
     Route: 042
     Dates: start: 20160413
  2. COUMADIN [Concomitant]
     Active Substance: WARFARIN SODIUM
  3. VELETRI [Suspect]
     Active Substance: EPOPROSTENOL
     Dosage: 20 NG/KG, PER MIN
     Route: 042

REACTIONS (16)
  - Device dislocation [Unknown]
  - Chest discomfort [Unknown]
  - Arthralgia [Unknown]
  - Blood glucose decreased [Unknown]
  - Malaise [Unknown]
  - Pain in jaw [Unknown]
  - Rash [Unknown]
  - Pain [Unknown]
  - Diarrhoea [Unknown]
  - Flushing [Unknown]
  - Dizziness [Unknown]
  - Oedema [Unknown]
  - Oedema peripheral [Unknown]
  - Fall [Unknown]
  - Syncope [Unknown]
  - Nausea [Unknown]
